FAERS Safety Report 25509795 (Version 1)
Quarter: 2025Q3

REPORT INFORMATION
  Report Type: Spontaneous
  Country: US (occurrence: None)
  Receive Date: 20250702
  Receipt Date: 20250702
  Transmission Date: 20251020
  Serious: Yes (Other)
  Sender: FDA-CTU
  Company Number: None

PATIENT
  Age: 81 Year
  Sex: Female

DRUGS (1)
  1. LATANOPROST [Suspect]
     Active Substance: LATANOPROST
     Dosage: 125 GTT DROP(S) AT BEDTIME OPHTHALMIC
     Route: 047

REACTIONS (7)
  - Burning sensation [None]
  - Lacrimation increased [None]
  - Photophobia [None]
  - Eye discharge [None]
  - Eye pain [None]
  - Vision blurred [None]
  - Pruritus [None]

NARRATIVE: CASE EVENT DATE: 20250702
